FAERS Safety Report 8447309-2 (Version None)
Quarter: 2012Q2

REPORT INFORMATION
  Report Type: 
  Country: None (occurrence: None)
  Receive Date: 20120619
  Receipt Date: 20120612
  Transmission Date: 20120825
  Serious: Yes (Other)
  Sender: FDA-Public Use
  Company Number: PHHY2011JP88234

PATIENT
  Sex: Female
  Weight: 40 kg

DRUGS (8)
  1. TASIGNA [Suspect]
     Indication: CHRONIC MYELOID LEUKAEMIA
     Dosage: 400 MG, DAILY
     Route: 048
     Dates: start: 20090928
  2. LANSOPRAZOLE [Concomitant]
     Dosage: 15 MG, DAILY
     Route: 048
     Dates: start: 20090928
  3. DEPAKENE [Concomitant]
     Dosage: 400 MG, DAILY
     Route: 048
     Dates: start: 20090928
  4. URSO 250 [Concomitant]
     Dosage: 600 MG, DAILY
     Route: 048
     Dates: start: 20090928
  5. GLYCYRON [Concomitant]
     Dosage: 6 DF, DAILY
     Route: 048
     Dates: start: 20090928
  6. ALLOPURINOL [Concomitant]
     Dosage: 100 MG, DAILY
     Route: 048
     Dates: start: 20090928
  7. LASIX [Concomitant]
     Dosage: 20 MG, DAILY
     Route: 048
     Dates: start: 20090928
  8. CAMOSTAT MESILATE [Concomitant]
     Dosage: 600 MG, DAILY
     Route: 048
     Dates: start: 20090928

REACTIONS (2)
  - LIPASE INCREASED [None]
  - WEIGHT INCREASED [None]
